FAERS Safety Report 5776725-2 (Version None)
Quarter: 2008Q2

REPORT INFORMATION
  Report Type: 
  Country: None (occurrence: None)
  Receive Date: 20080618
  Receipt Date: 20080304
  Transmission Date: 20081010
  Serious: No
  Sender: FDA-Public Use
  Company Number: US-ASTRAZENECA-2008UW04415

PATIENT
  Age: 70 Year
  Sex: Female

DRUGS (3)
  1. SYMBICORT [Suspect]
     Indication: ASTHMA
     Route: 055
     Dates: start: 20080303
  2. OXYCODONE HCL [Concomitant]
  3. ALBUTEROL [Concomitant]

REACTIONS (2)
  - FLUSHING [None]
  - PAIN IN EXTREMITY [None]
